FAERS Safety Report 22634551 (Version 1)
Quarter: 2023Q2

REPORT INFORMATION
  Report Type: Spontaneous
  Country: US (occurrence: US)
  Receive Date: 20230623
  Receipt Date: 20230623
  Transmission Date: 20230721
  Serious: No
  Sender: FDA-Public Use
  Company Number: US-TAKEDA-2023TUS061151

PATIENT
  Sex: Female
  Weight: 76.19 kg

DRUGS (2)
  1. ROZEREM [Suspect]
     Active Substance: RAMELTEON
     Indication: Initial insomnia
     Dosage: 8 MILLIGRAM
     Route: 065
     Dates: start: 20230619, end: 20230619
  2. PRAVASTATIN [Concomitant]
     Active Substance: PRAVASTATIN
     Indication: Blood cholesterol abnormal
     Dosage: 20 MILLIGRAM

REACTIONS (3)
  - Allergic reaction to excipient [Unknown]
  - Malaise [Unknown]
  - Vomiting [Unknown]
